FAERS Safety Report 22622777 (Version 1)
Quarter: 2023Q2

REPORT INFORMATION
  Report Type: Spontaneous
  Country: US (occurrence: US)
  Receive Date: 20230621
  Receipt Date: 20230621
  Transmission Date: 20230722
  Serious: No
  Sender: FDA-Public Use
  Company Number: US-009507513-2306USA004747

PATIENT
  Age: 60 Year
  Sex: Female

DRUGS (4)
  1. BRIDION [Suspect]
     Active Substance: SUGAMMADEX
     Indication: Neuromuscular blockade reversal
     Dosage: 2 MILLIGRAM/KILOGRAM, INITIAL DOSE (ONCE)
     Route: 042
  2. BRIDION [Suspect]
     Active Substance: SUGAMMADEX
     Dosage: 2 MILLIGRAM/KILOGRAM, THE SECOND DOSE (ONCE)
     Route: 042
  3. HEPARIN [Concomitant]
     Active Substance: HEPARIN SODIUM
  4. PROTAMINE [Concomitant]
     Active Substance: PROTAMINE

REACTIONS (2)
  - Dyspnoea [Recovered/Resolved]
  - Recurrence of neuromuscular blockade [Recovered/Resolved]
